FAERS Safety Report 12074438 (Version 6)
Quarter: 2016Q2

REPORT INFORMATION
  Report Type: Spontaneous
  Country: FR (occurrence: FR)
  Receive Date: 20160212
  Receipt Date: 20160427
  Transmission Date: 20160815
  Serious: Yes (Other)
  Sender: FDA-Public Use
  Company Number: FR-SA-2016SA018102

PATIENT
  Age: 54 Year
  Sex: Female

DRUGS (2)
  1. AUBAGIO [Suspect]
     Active Substance: TERIFLUNOMIDE
     Route: 065
     Dates: start: 20150624
  2. FAMPYRA [Concomitant]
     Active Substance: DALFAMPRIDINE

REACTIONS (13)
  - Ataxia [Not Recovered/Not Resolved]
  - Alopecia [Unknown]
  - Multiple sclerosis relapse [Unknown]
  - Skin ulcer [Unknown]
  - Staphylococcal infection [Recovered/Resolved]
  - Overweight [Unknown]
  - Motor dysfunction [Not Recovered/Not Resolved]
  - Gait spastic [Not Recovered/Not Resolved]
  - Lhermitte^s sign [Not Recovered/Not Resolved]
  - Bladder catheterisation [Unknown]
  - Skin atrophy [Unknown]
  - Gait disturbance [Not Recovered/Not Resolved]
  - Multiple sclerosis [Unknown]

NARRATIVE: CASE EVENT DATE: 201509
